FAERS Safety Report 8243720-3 (Version None)
Quarter: 2012Q1

REPORT INFORMATION
  Report Type: 
  Country: None (occurrence: None)
  Receive Date: 20120329
  Receipt Date: 20110418
  Transmission Date: 20120608
  Serious: No
  Sender: FDA-Public Use
  Company Number: US-MYLANLABS-2011S1007912

PATIENT
  Age: 57 Year
  Sex: Male

DRUGS (9)
  1. URSODIOL [Concomitant]
     Indication: HEPATIC STEATOSIS
  2. EMSAM [Suspect]
     Route: 062
     Dates: start: 20110414
  3. EMSAM [Suspect]
     Indication: SUICIDAL IDEATION
     Route: 062
     Dates: start: 20110309, end: 20110414
  4. EMSAM [Suspect]
     Route: 062
     Dates: start: 20110414
  5. EMSAM [Suspect]
     Indication: DELUSION
     Route: 062
     Dates: start: 20110309, end: 20110414
  6. EMSAM [Suspect]
     Indication: DEPRESSION
     Route: 062
     Dates: start: 20110309, end: 20110414
  7. EMSAM [Suspect]
     Route: 062
     Dates: start: 20110414
  8. LEVOTHYROXINE SODIUM [Concomitant]
     Indication: AUTOIMMUNE THYROIDITIS
  9. NIFEDIPINE [Concomitant]
     Indication: BLOOD PRESSURE

REACTIONS (4)
  - DRUG INEFFECTIVE [None]
  - SUICIDAL IDEATION [None]
  - HYPERSOMNIA [None]
  - DELUSION [None]
